FAERS Safety Report 19280449 (Version 1)
Quarter: 2021Q2

REPORT INFORMATION
  Report Type: Spontaneous
  Country: JP (occurrence: JP)
  Receive Date: 20210521
  Receipt Date: 20210521
  Transmission Date: 20210717
  Serious: Yes (Hospitalization)
  Sender: FDA-Public Use
  Company Number: JP-JNJFOC-20210525304

PATIENT
  Age: 81 Year
  Sex: Female

DRUGS (4)
  1. THYRADIN S [Concomitant]
     Active Substance: LEVOTHYROXINE SODIUM
  2. XARELTO [Suspect]
     Active Substance: RIVAROXABAN
     Indication: PRODUCT USED FOR UNKNOWN INDICATION
     Route: 048
  3. IRBESARTAN. [Concomitant]
     Active Substance: IRBESARTAN
  4. AMLODIPINE BESILATE [Concomitant]
     Active Substance: AMLODIPINE BESYLATE

REACTIONS (1)
  - Necrotising oesophagitis [Unknown]
